FAERS Safety Report 20785464 (Version 2)
Quarter: 2022Q2

REPORT INFORMATION
  Report Type: Report from Study
  Country: US (occurrence: US)
  Receive Date: 20220504
  Receipt Date: 20220622
  Transmission Date: 20220721
  Serious: Yes (Other)
  Sender: FDA-Public Use
  Company Number: US-ABBVIE-21K-163-4204476-00

PATIENT
  Age: 64 Year
  Sex: Male

DRUGS (2)
  1. IMBRUVICA [Suspect]
     Active Substance: IBRUTINIB
     Indication: Chronic lymphocytic leukaemia
     Route: 048
     Dates: start: 20200401, end: 202204
  2. IMBRUVICA [Suspect]
     Active Substance: IBRUTINIB
     Route: 048
     Dates: start: 202204

REACTIONS (10)
  - Inguinal hernia [Unknown]
  - Incision site swelling [Recovering/Resolving]
  - Arthritis [Not Recovered/Not Resolved]
  - Rotator cuff syndrome [Recovering/Resolving]
  - COVID-19 [Unknown]
  - Abdominal pain upper [Unknown]
  - Musculoskeletal pain [Unknown]
  - Pneumonia [Unknown]
  - Palpitations [Unknown]
  - Contusion [Recovering/Resolving]

NARRATIVE: CASE EVENT DATE: 20211206
